FAERS Safety Report 10270051 (Version 1)
Quarter: 2014Q2

REPORT INFORMATION
  Report Type: Spontaneous
  Country: US (occurrence: None)
  Receive Date: 20140626
  Receipt Date: 20140626
  Transmission Date: 20141212
  Serious: Yes (Death)
  Sender: FDA-Public Use
  Company Number: UNT-2014-002541

PATIENT
  Age: 64 Year
  Sex: Female

DRUGS (2)
  1. REMODULIN [Suspect]
     Indication: PULMONARY ARTERIAL HYPERTENSION
     Route: 041
     Dates: start: 20131127
  2. REMODULIN (TREPROSTINIL SODIUM (INJECTION) 1 MG [Concomitant]

REACTIONS (1)
  - Cardiac disorder [None]
